FAERS Safety Report 16273005 (Version 1)
Quarter: 2019Q2

REPORT INFORMATION
  Report Type: Spontaneous
  Country: NL (occurrence: NL)
  Receive Date: 20190506
  Receipt Date: 20190506
  Transmission Date: 20190711
  Serious: Yes (Disabling)
  Sender: FDA-Public Use
  Company Number: NL-TEVA-2019-NL-1046081

PATIENT
  Age: 35 Year
  Sex: Male
  Weight: 82 kg

DRUGS (13)
  1. MORFINE 30 MG [Concomitant]
     Dosage: 30 MG IF NECESSARY (SEVERAL TIMES A MONTH)
  2. PARACETAMOL [Concomitant]
     Active Substance: ACETAMINOPHEN
  3. MTX [Concomitant]
     Active Substance: METHOTREXATE SODIUM
     Dosage: ONCE A WEEK 20 MG
  4. FOLIUMZUUR [Concomitant]
     Active Substance: FOLIC ACID
     Dosage: ONCE A WEEK 10 MG
  5. PANTOPRAZOL [Concomitant]
     Active Substance: PANTOPRAZOLE SODIUM
     Dosage: 1 DD 40 MG
  6. SALBUTAMOL 100 MCG [Concomitant]
  7. ROSUVASTATINE [ROSUVASTATIN] [Suspect]
     Active Substance: ROSUVASTATIN
     Indication: BLOOD CHOLESTEROL INCREASED
     Dosage: 1DD1T
     Dates: start: 1999, end: 20190302
  8. OXYCOCDON [Concomitant]
     Dosage: 5 MG 1-4 DD
  9. LEVOCETRIZINE [Concomitant]
     Active Substance: LEVOCETIRIZINE
     Dosage: 1-4 DD 5 MG
  10. DIAZEPAM. [Concomitant]
     Active Substance: DIAZEPAM
     Dosage: ZN 1-2 DD 10 MG
  11. FOSTER 100/6 MCG 1 DD 1 [Concomitant]
  12. METFORMINE [Concomitant]
     Active Substance: METFORMIN HYDROCHLORIDE
     Dosage: 4 DD 500 MG (2-1-1-)
  13. HCT [Concomitant]
     Active Substance: HYDROCHLOROTHIAZIDE
     Dosage: 1 DD 12.5 MG

REACTIONS (1)
  - Back pain [Recovered/Resolved]

NARRATIVE: CASE EVENT DATE: 1999
